FAERS Safety Report 4458833-1 (Version None)
Quarter: 2004Q3

REPORT INFORMATION
  Report Type: 
  Country: None (occurrence: None)
  Receive Date: 20040922
  Receipt Date: 20040922
  Transmission Date: 20050211
  Serious: Yes (Life-Threatening, Disabling)
  Sender: FDA-Public Use
  Company Number: None

PATIENT
  Age: 16 Year
  Sex: Male
  Weight: 54.4316 kg

DRUGS (3)
  1. RISPERDAL [Suspect]
     Indication: ANXIETY
     Dosage: 0.25 AM + 1 MG EVES
     Dates: start: 20000401
  2. RISPERDAL [Suspect]
     Indication: BIPOLAR DISORDER
     Dosage: 0.25 AM + 1 MG EVES
     Dates: start: 20000401
  3. ZOLOFT [Concomitant]

REACTIONS (1)
  - DIABETES MELLITUS INSULIN-DEPENDENT [None]
